FAERS Safety Report 9112659 (Version 3)
Quarter: 2014Q2

REPORT INFORMATION
  Report Type: Report from Study
  Country: BR (occurrence: BR)
  Receive Date: 20130211
  Receipt Date: 20140606
  Transmission Date: 20141212
  Serious: Yes (Hospitalization, Other)
  Sender: FDA-Public Use
  Company Number: BR-US-EMD SERONO, INC.-7192014

PATIENT
  Age: 6 Year
  Sex: Male

DRUGS (16)
  1. SAIZEN [Suspect]
     Indication: GROWTH HORMONE DEFICIENCY
     Route: 058
     Dates: start: 20081023
  2. SAIZEN [Suspect]
     Route: 058
     Dates: end: 201405
  3. SAIZEN [Suspect]
     Dates: start: 20140527
  4. REDOXON [Concomitant]
     Indication: PRODUCT USED FOR UNKNOWN INDICATION
  5. RENAGEL [Concomitant]
     Indication: BLOOD POTASSIUM INCREASED
  6. MAX [Concomitant]
     Indication: PRODUCT USED FOR UNKNOWN INDICATION
  7. CAPTOPRIL [Concomitant]
     Indication: BLOOD PRESSURE ABNORMAL
  8. POTASSIUM [Concomitant]
     Indication: PRODUCT USED FOR UNKNOWN INDICATION
  9. CALCITRIOL [Concomitant]
     Indication: PRODUCT USED FOR UNKNOWN INDICATION
  10. VITAMIN E                          /00110501/ [Concomitant]
     Indication: PRODUCT USED FOR UNKNOWN INDICATION
  11. SIMVASTATIN [Concomitant]
     Indication: PRODUCT USED FOR UNKNOWN INDICATION
  12. ALLOPURINOL [Concomitant]
     Indication: PRODUCT USED FOR UNKNOWN INDICATION
  13. CARVEDILOL [Concomitant]
     Indication: PRODUCT USED FOR UNKNOWN INDICATION
  14. NEUTROFER [Concomitant]
     Indication: PRODUCT USED FOR UNKNOWN INDICATION
  15. B COMPLEX                          /00212701/ [Concomitant]
     Indication: PRODUCT USED FOR UNKNOWN INDICATION
  16. EMAX [Concomitant]
     Indication: PRODUCT USED FOR UNKNOWN INDICATION

REACTIONS (6)
  - Hypertension [Recovering/Resolving]
  - Dysuria [Unknown]
  - Pulmonary oedema [Recovered/Resolved]
  - Agitation [Unknown]
  - Dialysis related complication [Recovered/Resolved]
  - Coordination abnormal [Recovered/Resolved]
